FAERS Safety Report 6168156-0 (Version None)
Quarter: 2009Q2

REPORT INFORMATION
  Report Type: 
  Country: None (occurrence: None)
  Receive Date: 20090423
  Receipt Date: 20090413
  Transmission Date: 20091009
  Serious: Yes (Hospitalization)
  Sender: FDA-Public Use
  Company Number: 234053K09USA

PATIENT
  Age: 50 Year
  Sex: Female

DRUGS (3)
  1. REBIF [Suspect]
     Indication: OFF LABEL USE
     Dosage: 44 MCG, 3 IN 1 WEEKS, SUBCUTANEOUS
     Route: 058
     Dates: start: 20090216, end: 20090401
  2. PLAVIX [Concomitant]
  3. UNSPECIFIED STEROIDS (CORTICOSTEROIDS) [Concomitant]

REACTIONS (4)
  - ANEURYSM [None]
  - APPARENT LIFE THREATENING EVENT [None]
  - OFF LABEL USE [None]
  - PROCEDURAL COMPLICATION [None]
